FAERS Safety Report 6821695-9 (Version None)
Quarter: 2010Q3

REPORT INFORMATION
  Report Type: 
  Country: None (occurrence: None)
  Receive Date: 20100702
  Receipt Date: 20100618
  Transmission Date: 20110219
  Serious: Yes (Other)
  Sender: FDA-Public Use
  Company Number: DSJ-2010-10114

PATIENT
  Age: 50 Year
  Sex: Female

DRUGS (6)
  1. BENICAR [Suspect]
     Indication: HYPERTENSION
     Dosage: 40 MG (40 MG,1 IN 1 D), PER ORAL
     Route: 048
     Dates: start: 20091001
  2. HYDROCHLOROTHIAZIDE [Suspect]
     Indication: HYPERTENSION
     Dosage: 2.5 MG (2.5 MG,1 IN 1 D), PER ORAL
     Route: 048
     Dates: start: 20091001
  3. CLONIDINE [Suspect]
     Indication: HYPERTENSION
     Dosage: (25 MG)
     Dates: start: 20100601
  4. AMLODIPINE [Suspect]
     Indication: HYPERTENSION
     Dosage: 5 MG (5 MG)
     Dates: start: 20100611
  5. SOTALOL (SOTALOL) (SOTALOL) [Concomitant]
  6. SIMVASTATIN [Concomitant]

REACTIONS (4)
  - ARTHRALGIA [None]
  - DRUG INEFFECTIVE [None]
  - OEDEMA PERIPHERAL [None]
  - PARAESTHESIA [None]
